FAERS Safety Report 8318212-3 (Version None)
Quarter: 2012Q2

REPORT INFORMATION
  Report Type: 
  Country: None (occurrence: None)
  Receive Date: 20120427
  Receipt Date: 20120416
  Transmission Date: 20120825
  Serious: Yes (Hospitalization)
  Sender: FDA-Public Use
  Company Number: US-SANOFI-AVENTIS-2012SA026948

PATIENT
  Age: 77 Year
  Sex: Male
  Weight: 117.9 kg

DRUGS (5)
  1. PROVENGE [Concomitant]
     Indication: PROSTATE CANCER
     Dates: start: 20120301, end: 20120301
  2. DEMEROL [Suspect]
     Indication: INFUSION RELATED REACTION
     Dates: start: 20120315
  3. COUMADIN [Concomitant]
  4. PROVENGE [Concomitant]
     Dates: start: 20120315, end: 20120315
  5. BENADRYL [Suspect]
     Indication: INFUSION RELATED REACTION
     Dates: start: 20120315

REACTIONS (2)
  - ASTHENIA [None]
  - FALL [None]
